FAERS Safety Report 26032093 (Version 1)
Quarter: 2025Q4

REPORT INFORMATION
  Report Type: Spontaneous
  Country: EU (occurrence: EU)
  Receive Date: 20251112
  Receipt Date: 20251112
  Transmission Date: 20260117
  Serious: Yes (Life-Threatening, Other)
  Sender: AUROBINDO
  Company Number: EU-AFSSAPS-PB2025001350

PATIENT
  Age: 58 Year
  Sex: Male

DRUGS (5)
  1. ZOPICLONE [Suspect]
     Active Substance: ZOPICLONE
     Indication: Poisoning deliberate
     Dosage: 420 MILLIGRAM, TOATL
     Route: 048
     Dates: start: 20250821
  2. ALPRAZOLAM [Suspect]
     Active Substance: ALPRAZOLAM
     Indication: Poisoning deliberate
     Dosage: 15 MILLIGRAM, TOTAL
     Route: 048
     Dates: start: 20250821
  3. BROMAZEPAM [Suspect]
     Active Substance: BROMAZEPAM
     Indication: Poisoning deliberate
     Dosage: 360 MILLIGRAM, TOTAL
     Route: 048
     Dates: start: 20250821
  4. LORAZEPAM [Suspect]
     Active Substance: LORAZEPAM
     Indication: Poisoning deliberate
     Dosage: 150 MILLIGRAM, TOTAL
     Route: 048
     Dates: start: 20250821
  5. TAMSULOSIN HYDROCHLORIDE [Suspect]
     Active Substance: TAMSULOSIN HYDROCHLORIDE
     Indication: Poisoning deliberate
     Dosage: 3.2 MILLIGRAM, TOTAL
     Route: 048
     Dates: start: 20250821

REACTIONS (2)
  - Poisoning deliberate [Recovered/Resolved]
  - Depressed level of consciousness [Recovered/Resolved]

NARRATIVE: CASE EVENT DATE: 20250821
